FAERS Safety Report 5124439-4 (Version None)
Quarter: 2006Q4

REPORT INFORMATION
  Report Type: 
  Country: None (occurrence: None)
  Receive Date: 20060816
  Receipt Date: 20060616
  Transmission Date: 20070319
  Serious: No
  Sender: FDA-Public Use
  Company Number: US200606004156

PATIENT
  Age: 61 Year
  Sex: Male

DRUGS (5)
  1. CIALIS [Suspect]
     Dosage: 20 MG, UNK, UNK
     Dates: start: 20060526
  2. LANTUS [Concomitant]
  3. GLIPIZIDE [Concomitant]
  4. HYDROCHLOROTHIAZIDE [Concomitant]
  5. METFORMIN HCL [Concomitant]

REACTIONS (1)
  - DRUG INEFFECTIVE [None]
